FAERS Safety Report 16279297 (Version 1)
Quarter: 2019Q2

REPORT INFORMATION
  Report Type: Report from Study
  Country: None (occurrence: IE)
  Receive Date: 20190507
  Receipt Date: 20190507
  Transmission Date: 20190711
  Serious: Yes (Hospitalization)
  Sender: FDA-Public Use
  Company Number: IE-ABBVIE-19K-229-2767967-00

PATIENT
  Sex: Male

DRUGS (1)
  1. HUMIRA [Suspect]
     Active Substance: ADALIMUMAB
     Indication: COLITIS ULCERATIVE
     Route: 058
     Dates: start: 20170302, end: 20190425

REACTIONS (5)
  - Malaise [Not Recovered/Not Resolved]
  - Feeling abnormal [Unknown]
  - Sluggishness [Unknown]
  - Feeling abnormal [Not Recovered/Not Resolved]
  - Blood test abnormal [Unknown]
